FAERS Safety Report 5099551-9 (Version None)
Quarter: 2006Q3

REPORT INFORMATION
  Report Type: 
  Country: None (occurrence: None)
  Receive Date: 20060908
  Receipt Date: 20030425
  Transmission Date: 20061208
  Serious: Yes (Death)
  Sender: FDA-Public Use
  Company Number: US-AMGEN-US036715

PATIENT
  Sex: Female

DRUGS (8)
  1. ENBREL [Suspect]
     Indication: PSORIATIC ARTHROPATHY
     Route: 058
     Dates: start: 20030115
  2. AMITRIPTYLINE HCL [Suspect]
  3. HYZAAR [Concomitant]
     Route: 048
  4. HYDROCHLOROTHIAZIDE [Concomitant]
     Route: 048
  5. PACERONE (UPSHER-SMITH LAB) [Concomitant]
     Route: 048
  6. WARFARIN SODIUM [Concomitant]
  7. LORAZEPAM [Concomitant]
  8. OXYCODONE HCL [Concomitant]
     Route: 048

REACTIONS (2)
  - CARDIAC FAILURE [None]
  - OVERDOSE [None]
